FAERS Safety Report 7435872-X (Version None)
Quarter: 2011Q2

REPORT INFORMATION
  Report Type: 
  Country: None (occurrence: None)
  Receive Date: 20110425
  Receipt Date: 20110418
  Transmission Date: 20111010
  Serious: Yes (Other)
  Sender: FDA-Public Use
  Company Number: JP-ROXANE LABORATORIES, INC.-2011-RO-00527RO

PATIENT
  Age: 33 Year
  Sex: Female

DRUGS (5)
  1. METHYLPREDNISOLONE [Suspect]
     Indication: INTERSTITIAL LUNG DISEASE
     Dates: start: 20070101
  2. CYCLOPHOSPHAMIDE [Suspect]
     Indication: INTERSTITIAL LUNG DISEASE
     Dates: start: 20040101
  3. PREDNISOLONE [Suspect]
     Dosage: 13 MG
  4. AZATHIOPRINE [Suspect]
     Indication: INTERSTITIAL LUNG DISEASE
     Dosage: 100 MG
     Dates: start: 20070301, end: 20080701
  5. PREDNISOLONE [Suspect]
     Indication: SYSTEMIC SCLEROSIS
     Dosage: 60 MG

REACTIONS (2)
  - APLASIA PURE RED CELL [None]
  - INTERSTITIAL LUNG DISEASE [None]
